FAERS Safety Report 8081774-8 (Version None)
Quarter: 2012Q1

REPORT INFORMATION
  Report Type: 
  Country: None (occurrence: None)
  Receive Date: 20120130
  Receipt Date: 20120124
  Transmission Date: 20120608
  Serious: Yes (Other)
  Sender: FDA-Public Use
  Company Number: US-PFIZER INC-2012019681

PATIENT
  Sex: Female

DRUGS (2)
  1. EFFEXOR XR [Suspect]
     Dosage: 150, 1 TAB IN AM
  2. EFFEXOR XR [Suspect]
     Dosage: 75, 1 TAB IN AM

REACTIONS (4)
  - HYPERTENSION [None]
  - AFFECT LABILITY [None]
  - DIABETES MELLITUS [None]
  - ASTHMA [None]
